FAERS Safety Report 5314589-1 (Version None)
Quarter: 2007Q2

REPORT INFORMATION
  Report Type: 
  Country: None (occurrence: None)
  Receive Date: 20070424
  Receipt Date: 20070416
  Transmission Date: 20071010
  Serious: Yes (Other)
  Sender: FDA-Public Use
  Company Number: 2007SP007042

PATIENT
  Age: 36 Year
  Sex: Female
  Weight: 53.5 kg

DRUGS (1)
  1. DIPROSPAN (BETAMETHASONE SODIUM PHOSPHATE/DIPROPIONATE) (BETAMETHASONE [Suspect]
     Indication: BRONCHIAL DISORDER
     Dosage: 2 ML; QD; IM
     Route: 030
     Dates: start: 20070331, end: 20070401

REACTIONS (2)
  - GENERALISED OEDEMA [None]
  - HIRSUTISM [None]
